FAERS Safety Report 8784509 (Version 1)
Quarter: 2012Q4

REPORT INFORMATION
  Report Type: Spontaneous
  Country: US (occurrence: None)
  Receive Date: 20120830
  Receipt Date: 20120830
  Transmission Date: 20130627
  Serious: Yes (Other)
  Sender: FDA-Public Use
  Company Number: 2012AP002711

PATIENT
  Sex: Female

DRUGS (1)
  1. LITHIUM CARBONATE CAPSULES [Suspect]

REACTIONS (3)
  - Polyhydramnios [None]
  - Stillbirth [None]
  - Exposure during pregnancy [None]
